FAERS Safety Report 8905360 (Version 1)
Quarter: 2012Q4

REPORT INFORMATION
  Report Type: 
  Country: CA (occurrence: CA)
  Receive Date: 20121113
  Receipt Date: 20121113
  Transmission Date: 20130627
  Serious: Yes (Other)
  Sender: FDA-Public Use
  Company Number: CA-ELI_LILLY_AND_COMPANY-CA201211001771

PATIENT
  Age: 72 Year
  Sex: Female

DRUGS (1)
  1. EFFIENT [Suspect]
     Dosage: 10 mg, qd
     Route: 065

REACTIONS (1)
  - Thrombosis in device [Unknown]
